FAERS Safety Report 17888362 (Version 1)
Quarter: 2020Q2

REPORT INFORMATION
  Report Type: Spontaneous
  Country: CA (occurrence: CA)
  Receive Date: 20200612
  Receipt Date: 20200612
  Transmission Date: 20200714
  Serious: Yes (Other)
  Sender: FDA-Public Use
  Company Number: CA-B.I. PHARMACEUTICALS,INC./RIDGEFIELD-2020-BI-028583

PATIENT
  Age: 51 Year
  Sex: Female

DRUGS (11)
  1. OMALIZUMAB. [Suspect]
     Active Substance: OMALIZUMAB
     Indication: PRURITUS
     Route: 065
  2. DEXTROMETHORPHAN HYDROBROMIDE;GUAIFENESIN;PHENYLEPHRINE HYDROCHLORIDE [Concomitant]
     Indication: HODGKIN^S DISEASE
     Route: 065
  3. AMITRIPTYLINE [Suspect]
     Active Substance: AMITRIPTYLINE
     Indication: PRURITUS
     Route: 065
  4. BRENTUXIMAB VEDOTIN [Concomitant]
     Active Substance: BRENTUXIMAB VEDOTIN
     Indication: HODGKIN^S DISEASE
     Route: 065
  5. PROCARBAZINE [Concomitant]
     Active Substance: PROCARBAZINE
     Indication: HODGKIN^S DISEASE
     Route: 065
  6. APREPITANT. [Suspect]
     Active Substance: APREPITANT
     Indication: PRURITUS
     Route: 065
  7. NAVELBINE [Concomitant]
     Active Substance: VINORELBINE TARTRATE
     Indication: HODGKIN^S DISEASE
     Route: 065
  8. NIVOLUMAB [Concomitant]
     Active Substance: NIVOLUMAB
     Indication: HODGKIN^S DISEASE
     Dosage: SOLUTION INTRAVENOUS
     Route: 065
  9. CYTOXAN [Concomitant]
     Active Substance: CYCLOPHOSPHAMIDE
     Indication: HODGKIN^S DISEASE
     Route: 065
  10. GILOTRIF [Suspect]
     Active Substance: AFATINIB
     Indication: HODGKIN^S DISEASE
     Route: 065
  11. BLEOMYCIN;DACARBAZINE;DOXORUBICIN HYDROCHLORIDE;VINBLASTINE SULFATE [Concomitant]
     Indication: HODGKIN^S DISEASE
     Route: 065

REACTIONS (4)
  - Disease progression [Unknown]
  - Pruritus [Unknown]
  - Drug ineffective [Unknown]
  - Insomnia [Unknown]
